FAERS Safety Report 8373162-1 (Version None)
Quarter: 2012Q2

REPORT INFORMATION
  Report Type: 
  Country: None (occurrence: None)
  Receive Date: 20120521
  Receipt Date: 20120510
  Transmission Date: 20120825
  Serious: Yes (Hospitalization)
  Sender: FDA-Public Use
  Company Number: JP-VERTEX PHARMACEUTICALS INC.-AE-2012-007182

PATIENT
  Age: 63 Year
  Sex: Female

DRUGS (6)
  1. REBETOL [Concomitant]
     Route: 048
     Dates: start: 20120126, end: 20120328
  2. TELAVIC (TELAPREVIR) [Suspect]
     Indication: HEPATITIS C
     Route: 048
     Dates: start: 20120126, end: 20120128
  3. TELAVIC (TELAPREVIR) [Suspect]
     Route: 048
     Dates: start: 20120128
  4. GASMOTIN [Concomitant]
     Route: 048
     Dates: start: 20120126
  5. REBETOL [Concomitant]
     Route: 048
     Dates: start: 20120329
  6. PEG-INTRON [Concomitant]
     Route: 058
     Dates: start: 20120126

REACTIONS (1)
  - DECREASED APPETITE [None]
